FAERS Safety Report 23815681 (Version 1)
Quarter: 2024Q2

REPORT INFORMATION
  Report Type: Spontaneous
  Country: FR (occurrence: FR)
  Receive Date: 20240503
  Receipt Date: 20240503
  Transmission Date: 20240716
  Serious: Yes (Other)
  Sender: FDA-Public Use
  Company Number: None

PATIENT
  Age: 36 Year
  Sex: Female
  Weight: 81 kg

DRUGS (2)
  1. CETIRIZINE [Suspect]
     Active Substance: CETIRIZINE HYDROCHLORIDE
     Indication: Hypersensitivity
     Dosage: 1 CP/D, CETIRIZINE HYDROCHLORIDE
     Route: 048
     Dates: start: 20240212, end: 20240218
  2. PNEUMOVAX 23 [Suspect]
     Active Substance: PNEUMOCOCCAL VACCINE, POLYVALENT 23
     Indication: Immunisation
     Dosage: D1,  IN PRE-FILLED SYRINGE, PNEUMOCOCCAL POLYSACCHARIDE VACCINE
     Route: 058
     Dates: start: 20240212, end: 20240212

REACTIONS (3)
  - Palpitations [Recovering/Resolving]
  - Hypersensitivity [Recovered/Resolved]
  - Chest pain [Recovering/Resolving]

NARRATIVE: CASE EVENT DATE: 20240212
